FAERS Safety Report 20847421 (Version 2)
Quarter: 2022Q2

REPORT INFORMATION
  Report Type: Spontaneous
  Country: US (occurrence: US)
  Receive Date: 20220519
  Receipt Date: 20220531
  Transmission Date: 20220720
  Serious: Yes (Hospitalization, Disabling, Other)
  Sender: FDA-Public Use
  Company Number: US-BRISTOL-MYERS SQUIBB COMPANY-2022-040561

PATIENT
  Age: 60 Year
  Sex: Male
  Weight: 55.34 kg

DRUGS (1)
  1. REVLIMID [Suspect]
     Active Substance: LENALIDOMIDE
     Indication: Castleman^s disease
     Dosage: DAILY FOR 28DAYS
     Route: 048
     Dates: start: 202201, end: 20220312

REACTIONS (3)
  - Limb discomfort [Unknown]
  - Furuncle [Unknown]
  - Intentional product use issue [Unknown]

NARRATIVE: CASE EVENT DATE: 20220520
